FAERS Safety Report 6223189-0 (Version None)
Quarter: 2009Q2

REPORT INFORMATION
  Report Type: 
  Country: None (occurrence: None)
  Receive Date: 20090611
  Receipt Date: 20080710
  Transmission Date: 20091009
  Serious: Yes (Death)
  Sender: FDA-Public Use
  Company Number: US-JNJFOC-20080602888

PATIENT
  Sex: Female
  Weight: 55.34 kg

DRUGS (1)
  1. FENTANYL [Suspect]
     Indication: DRUG USE FOR UNKNOWN INDICATION
     Route: 062

REACTIONS (1)
  - NARCOTIC INTOXICATION [None]
